FAERS Safety Report 24766888 (Version 1)
Quarter: 2024Q4

REPORT INFORMATION
  Report Type: Spontaneous
  Country: CH (occurrence: CH)
  Receive Date: 20241223
  Receipt Date: 20241223
  Transmission Date: 20250115
  Serious: Yes (Hospitalization)
  Sender: GLAXOSMITHKLINE
  Company Number: None

PATIENT

DRUGS (4)
  1. LAMOTRIGINE [Suspect]
     Active Substance: LAMOTRIGINE
     Indication: Epilepsy
     Dosage: 150 MG, BID (1-0-1)
     Route: 048
     Dates: start: 20230220
  2. VIMPAT [Suspect]
     Active Substance: LACOSAMIDE
     Indication: Epilepsy
     Dosage: 200 MG, BID (1-0-1)
     Route: 048
     Dates: start: 20220830, end: 20241030
  3. VIMPAT [Suspect]
     Active Substance: LACOSAMIDE
     Dosage: 175 MG, BID (TAPERING BY 50 MG EVERY 2 WEEKS)
     Route: 048
     Dates: start: 20241031
  4. KEPPRA [Suspect]
     Active Substance: LEVETIRACETAM
     Indication: Epilepsy
     Dosage: 500 MG, BID (1-0-1), AB 31.10.2024 BRIVIACT
     Route: 048
     Dates: start: 20220829, end: 20241030

REACTIONS (3)
  - Movement disorder [Recovered/Resolved]
  - Speech disorder [Recovered/Resolved]
  - Diplopia [Recovered/Resolved]

NARRATIVE: CASE EVENT DATE: 20241028
